FAERS Safety Report 9915074 (Version 1)
Quarter: 2014Q1

REPORT INFORMATION
  Report Type: Spontaneous
  Country: US (occurrence: US)
  Receive Date: 20140220
  Receipt Date: 20140220
  Transmission Date: 20141002
  Serious: Yes (Hospitalization)
  Sender: FDA-Public Use
  Company Number: US-PFIZER INC-2014048541

PATIENT
  Age: 51 Year
  Sex: Female
  Weight: 64.85 kg

DRUGS (1)
  1. PREMARIN [Suspect]
     Indication: HOT FLUSH
     Dosage: 1.25 MG, 1X/DAY
     Dates: end: 201307

REACTIONS (2)
  - Musculoskeletal discomfort [Unknown]
  - Pain [Unknown]
